FAERS Safety Report 5701781-7 (Version None)
Quarter: 2008Q2

REPORT INFORMATION
  Report Type: 
  Country: None (occurrence: None)
  Receive Date: 20080410
  Receipt Date: 20080410
  Transmission Date: 20081010
  Serious: No
  Sender: FDA-Public Use
  Company Number: None

PATIENT
  Sex: Male
  Weight: 79.3795 kg

DRUGS (3)
  1. ADVAIR HFA [Suspect]
     Indication: ASTHMA
     Dosage: 2X PER DAY INHALE 2 1/2 - 3 YEARS
     Route: 055
  2. ASMANEX TWISTHALER [Suspect]
     Dosage: 2X PER DAY INHALE
     Route: 055
  3. FORADIL [Suspect]
     Dosage: 2X PER DAY INHALE
     Route: 055

REACTIONS (2)
  - BLINDNESS UNILATERAL [None]
  - GLAUCOMA [None]
